FAERS Safety Report 6806187-5 (Version None)
Quarter: 2010Q2

REPORT INFORMATION
  Report Type: 
  Country: None (occurrence: None)
  Receive Date: 20100629
  Receipt Date: 20071218
  Transmission Date: 20101027
  Serious: No
  Sender: FDA-Public Use
  Company Number: US-PFIZER INC-2007106913

PATIENT
  Sex: Male
  Weight: 90.909 kg

DRUGS (9)
  1. VIAGRA [Suspect]
     Indication: ERECTILE DYSFUNCTION
     Route: 048
     Dates: start: 20050101
  2. PROTONIX [Concomitant]
     Route: 048
  3. DIOVANE [Concomitant]
     Route: 048
  4. HYDROCHLOROTHIAZIDE [Concomitant]
     Route: 048
  5. OXYBUTYNIN CHLORIDE [Concomitant]
     Route: 048
  6. VYTORIN [Concomitant]
     Route: 048
  7. CARVEDILOL [Concomitant]
     Route: 048
  8. XALATAN [Concomitant]
     Route: 048
  9. ACETYLSALICYLIC ACID [Concomitant]
     Route: 048

REACTIONS (1)
  - RASH [None]
